FAERS Safety Report 8545090-X (Version None)
Quarter: 2012Q3

REPORT INFORMATION
  Report Type: 
  Country: None (occurrence: None)
  Receive Date: 20120727
  Receipt Date: 20120716
  Transmission Date: 20120928
  Serious: Yes (Other)
  Sender: FDA-Public Use
  Company Number: AU-ROCHE-1093247

PATIENT
  Sex: Female

DRUGS (2)
  1. ACTEMRA [Suspect]
     Indication: RHEUMATOID ARTHRITIS
     Dosage: DRUG INTERRUPTED
     Route: 042
     Dates: start: 20120208
  2. ACTEMRA [Suspect]
     Dosage: RESTARTED

REACTIONS (1)
  - LOWER RESPIRATORY TRACT INFECTION [None]
